FAERS Safety Report 13117023 (Version 1)
Quarter: 2017Q1

REPORT INFORMATION
  Report Type: Report from Study
  Country: FI (occurrence: FI)
  Receive Date: 20170116
  Receipt Date: 20170116
  Transmission Date: 20170428
  Serious: Yes (Other)
  Sender: FDA-Public Use
  Company Number: PHHY2015FI088907

PATIENT
  Age: 42 Year
  Sex: Female

DRUGS (11)
  1. GILENYA [Suspect]
     Active Substance: FINGOLIMOD HYDROCHLORIDE
     Indication: MULTIPLE SCLEROSIS RELAPSE
     Dosage: 0.5 MG, QD
     Route: 048
     Dates: start: 20150702, end: 20160906
  2. PANADOL [Suspect]
     Active Substance: ACETAMINOPHEN
     Indication: PAIN
  3. SOMAC [Concomitant]
     Active Substance: PANTOPRAZOLE SODIUM
     Indication: DYSPEPSIA
     Dosage: OCCASIONALLY
     Route: 065
     Dates: start: 201502
  4. SIRDALUD [Concomitant]
     Active Substance: TIZANIDINE
     Indication: MUSCLE RELAXANT THERAPY
  5. PANADOL [Suspect]
     Active Substance: ACETAMINOPHEN
     Indication: MULTIPLE SCLEROSIS RELAPSE
     Dosage: 1 G, TID
     Route: 065
     Dates: end: 201508
  6. GILENYA [Suspect]
     Active Substance: FINGOLIMOD HYDROCHLORIDE
     Dosage: UNK
     Route: 065
     Dates: start: 201609, end: 20170106
  7. PANADOL [Suspect]
     Active Substance: ACETAMINOPHEN
     Indication: PAIN
  8. PANADOL [Suspect]
     Active Substance: ACETAMINOPHEN
     Indication: MULTIPLE SCLEROSIS RELAPSE
     Dosage: 665 MG, BID
     Route: 065
     Dates: end: 201508
  9. AMANTADIN RATIOPHARM [Concomitant]
     Dosage: 100 MG, BID, (2 TABLETS IN THE MORNING)
     Route: 065
     Dates: start: 201509
  10. SIRDALUD [Concomitant]
     Active Substance: TIZANIDINE
     Indication: MULTIPLE SCLEROSIS RELAPSE
     Dosage: UNK
     Route: 065
     Dates: start: 2015
  11. AMANTADIN RATIOPHARM [Concomitant]
     Indication: FATIGUE
     Dosage: 100 MG, BID
     Route: 065
     Dates: end: 201508

REACTIONS (16)
  - Dizziness [Not Recovered/Not Resolved]
  - Fatigue [Not Recovered/Not Resolved]
  - Rhinorrhoea [Unknown]
  - Lymphopenia [Not Recovered/Not Resolved]
  - Tinnitus [Not Recovered/Not Resolved]
  - Alanine aminotransferase increased [Not Recovered/Not Resolved]
  - Chills [Unknown]
  - Blood pressure increased [Not Recovered/Not Resolved]
  - Blood pressure abnormal [Unknown]
  - Blood alkaline phosphatase increased [Not Recovered/Not Resolved]
  - Dry throat [Unknown]
  - Body temperature decreased [Unknown]
  - Constipation [Unknown]
  - Gamma-glutamyltransferase increased [Not Recovered/Not Resolved]
  - Monocyte count increased [Unknown]
  - Infrequent bowel movements [Unknown]

NARRATIVE: CASE EVENT DATE: 201507
